FAERS Safety Report 10829038 (Version 2)
Quarter: 2016Q1

REPORT INFORMATION
  Report Type: Report from Study
  Country: PR (occurrence: PR)
  Receive Date: 20150219
  Receipt Date: 20160125
  Transmission Date: 20160525
  Serious: No
  Sender: FDA-Public Use
  Company Number: PR-ABBVIE-14P-131-1282579-00

PATIENT
  Age: 77 Year
  Sex: Female
  Weight: 62.65 kg

DRUGS (9)
  1. HUMIRA [Suspect]
     Active Substance: ADALIMUMAB
     Indication: RHEUMATOID ARTHRITIS
     Route: 058
     Dates: start: 20140501
  2. FOLIC ACID. [Concomitant]
     Active Substance: FOLIC ACID
     Indication: VITAMIN SUPPLEMENTATION
     Route: 048
  3. TRAMADOL. [Concomitant]
     Active Substance: TRAMADOL
     Indication: PAIN
     Route: 048
  4. PERSANTINE [Concomitant]
     Active Substance: DIPYRIDAMOLE
     Indication: CARDIOVASCULAR DISORDER
     Route: 048
  5. CARAFATE [Concomitant]
     Active Substance: SUCRALFATE
     Indication: HYPERCHLORHYDRIA
     Route: 048
  6. SINGULAIR [Concomitant]
     Active Substance: MONTELUKAST SODIUM
     Indication: ASTHMA
     Route: 048
  7. METHOTREXATE [Concomitant]
     Active Substance: METHOTREXATE
     Indication: RHEUMATOID ARTHRITIS
  8. NORVASC [Concomitant]
     Active Substance: AMLODIPINE BESYLATE
     Indication: HYPERTENSION
     Route: 048
  9. ALBUTEROL. [Concomitant]
     Active Substance: ALBUTEROL
     Indication: ASTHMA
     Route: 055

REACTIONS (2)
  - Dyspepsia [Not Recovered/Not Resolved]
  - Thermal burn [Unknown]

NARRATIVE: CASE EVENT DATE: 2014
